FAERS Safety Report 6919608-4 (Version None)
Quarter: 2010Q3

REPORT INFORMATION
  Report Type: 
  Country: None (occurrence: None)
  Receive Date: 20100811
  Receipt Date: 20100806
  Transmission Date: 20110219
  Serious: Yes (Hospitalization)
  Sender: FDA-Public Use
  Company Number: US-MERCK-1008USA00881

PATIENT
  Age: 82 Year
  Sex: Male

DRUGS (1)
  1. JANUVIA [Suspect]
     Indication: DIABETES MELLITUS
     Route: 048
     Dates: start: 20100601, end: 20100601

REACTIONS (4)
  - DYSPHAGIA [None]
  - OROPHARYNGEAL PAIN [None]
  - PYREXIA [None]
  - RASH [None]
